FAERS Safety Report 6381452-7 (Version None)
Quarter: 2009Q3

REPORT INFORMATION
  Report Type: 
  Country: None (occurrence: None)
  Receive Date: 20090924
  Receipt Date: 20090915
  Transmission Date: 20100115
  Serious: Yes (Other)
  Sender: FDA-Public Use
  Company Number: GB-EBEWE-1374OXALI

PATIENT
  Age: 62 Year
  Sex: Male
  Weight: 102.6 kg

DRUGS (1)
  1. OXALIPLATIN [Suspect]
     Dosage: 250MG, INFUSED 2 HOURS
     Dates: start: 20090820

REACTIONS (3)
  - EXTRAVASATION [None]
  - PARAESTHESIA [None]
  - SWELLING [None]
